FAERS Safety Report 9282962 (Version 1)
Quarter: 2013Q2

REPORT INFORMATION
  Report Type: Spontaneous
  Country: US (occurrence: US)
  Receive Date: 20130510
  Receipt Date: 20130510
  Transmission Date: 20140414
  Serious: No
  Sender: FDA-Public Use
  Company Number: US-GLAXOSMITHKLINE-A0648410A

PATIENT
  Age: 62 Year
  Sex: Female

DRUGS (4)
  1. TYKERB [Suspect]
     Indication: BREAST CANCER
     Dosage: 5TAB PER DAY
     Route: 048
     Dates: start: 20070404
  2. XELODA [Suspect]
     Indication: BREAST CANCER
  3. PLAQUENIL [Concomitant]
  4. LOTREL [Concomitant]

REACTIONS (5)
  - Diarrhoea [Unknown]
  - Oral pain [Unknown]
  - Rash pruritic [Unknown]
  - Epistaxis [Unknown]
  - Palmar-plantar erythrodysaesthesia syndrome [Unknown]
